FAERS Safety Report 6180991-1 (Version None)
Quarter: 2009Q2

REPORT INFORMATION
  Report Type: 
  Country: None (occurrence: None)
  Receive Date: 20090430
  Receipt Date: 20090130
  Transmission Date: 20091009
  Serious: Yes (Other)
  Sender: FDA-Public Use
  Company Number: 270837

PATIENT
  Age: 91 Year
  Sex: Male

DRUGS (7)
  1. LUCENTIS [Suspect]
     Indication: MACULAR DEGENERATION
     Dosage: 0.5 MG, 1/MONTH, INTRAVITREAL : 0.5 MG, Q3M, INTRAVITREAL
     Dates: start: 20071024
  2. NAMENDA [Concomitant]
  3. SEROQUEL [Concomitant]
  4. METOPROLOL TARTRATE [Concomitant]
  5. LIPITOR [Concomitant]
  6. AMBIEN [Concomitant]
  7. ZYMAR [Concomitant]

REACTIONS (2)
  - INFLAMMATION [None]
  - MYODESOPSIA [None]
